FAERS Safety Report 8409636-4 (Version None)
Quarter: 2012Q2

REPORT INFORMATION
  Report Type: 
  Country: None (occurrence: None)
  Receive Date: 20120531
  Receipt Date: 20120531
  Transmission Date: 20120825
  Serious: No
  Sender: FDA-Public Use
  Company Number: None

PATIENT
  Sex: Female
  Weight: 72.5755 kg

DRUGS (4)
  1. CEPHALEXIN [Suspect]
     Indication: LYMPH GLAND INFECTION
     Dosage: 1 CAP 4 TIMES A DAY
     Dates: start: 20120424
  2. CEPHALEXIN [Suspect]
     Indication: OROPHARYNGEAL PAIN
     Dosage: 1 CAP 4 TIMES A DAY
     Dates: start: 20120424
  3. CEPHALEXIN [Suspect]
     Indication: LYMPH GLAND INFECTION
     Dosage: 1 CAP 4 TIMES A DAY
     Dates: start: 20120427
  4. CEPHALEXIN [Suspect]
     Indication: OROPHARYNGEAL PAIN
     Dosage: 1 CAP 4 TIMES A DAY
     Dates: start: 20120427

REACTIONS (1)
  - RECTAL HAEMORRHAGE [None]
